FAERS Safety Report 4514750-X (Version None)
Quarter: 2004Q4

REPORT INFORMATION
  Report Type: 
  Country: None (occurrence: None)
  Receive Date: 20041201
  Receipt Date: 20041119
  Transmission Date: 20050328
  Serious: Yes (Hospitalization)
  Sender: FDA-Public Use
  Company Number: US-JNJFOC-20041105328

PATIENT
  Sex: Male
  Weight: 73.03 kg

DRUGS (6)
  1. INFLIXIMAB [Suspect]
     Indication: RHEUMATOID ARTHRITIS
     Route: 042
  2. PREDNISONE [Concomitant]
  3. ZESTRIL [Concomitant]
  4. METHOTREXATE [Concomitant]
  5. IRON [Concomitant]
  6. FOLIC ACID [Concomitant]

REACTIONS (3)
  - ANGIOSARCOMA [None]
  - HIP ARTHROPLASTY [None]
  - POST PROCEDURAL HAEMORRHAGE [None]
